FAERS Safety Report 6682024-7 (Version None)
Quarter: 2010Q2

REPORT INFORMATION
  Report Type: 
  Country: None (occurrence: None)
  Receive Date: 20100414
  Receipt Date: 20100414
  Transmission Date: 20101027
  Serious: Yes (Other)
  Sender: FDA-Public Use
  Company Number: None

PATIENT
  Age: 48 Year
  Sex: Female
  Weight: 102.0593 kg

DRUGS (2)
  1. LEVAQUIN [Suspect]
     Indication: EAR INFECTION
     Dosage: 750MG DAILY PO
     Route: 048
     Dates: start: 20100304, end: 20100318
  2. LEVAQUIN [Suspect]
     Indication: SINUSITIS
     Dosage: 750MG DAILY PO
     Route: 048
     Dates: start: 20100304, end: 20100318

REACTIONS (6)
  - ARTHRALGIA [None]
  - CONDITION AGGRAVATED [None]
  - CONTUSION [None]
  - FIBROMYALGIA [None]
  - MEDICAL DEVICE SITE REACTION [None]
  - TENDONITIS [None]
